FAERS Safety Report 7938196-7 (Version None)
Quarter: 2011Q4

REPORT INFORMATION
  Report Type: 
  Country: None (occurrence: None)
  Receive Date: 20111123
  Receipt Date: 20110920
  Transmission Date: 20120403
  Serious: No
  Sender: FDA-Public Use
  Company Number: US-BRISTOL-MYERS SQUIBB COMPANY-16076713

PATIENT
  Age: 70 Year
  Sex: Male

DRUGS (3)
  1. ONGLYZA [Suspect]
  2. COUMADIN [Concomitant]
  3. METFORMIN [Concomitant]

REACTIONS (2)
  - MYALGIA [None]
  - PAIN [None]
